FAERS Safety Report 4514082-X (Version None)
Quarter: 2004Q4

REPORT INFORMATION
  Report Type: 
  Country: None (occurrence: None)
  Receive Date: 20041124
  Receipt Date: 20041104
  Transmission Date: 20050328
  Serious: Yes (Other)
  Sender: FDA-Public Use
  Company Number: USA041183237

PATIENT
  Age: 60 Year
  Sex: Female
  Weight: 65 kg

DRUGS (2)
  1. CYMBALTA [Suspect]
     Indication: FIBROMYALGIA
     Dosage: 40 MG
     Dates: start: 20041012, end: 20041018
  2. SINGULAIR (MONTELUKAST) [Concomitant]

REACTIONS (4)
  - ABDOMINAL PAIN UPPER [None]
  - CONTRAST MEDIA REACTION [None]
  - LIVER DISORDER [None]
  - LIVER TENDERNESS [None]
